FAERS Safety Report 10162373 (Version 1)
Quarter: 2014Q2

REPORT INFORMATION
  Report Type: Spontaneous
  Country: IT (occurrence: None)
  Receive Date: 20140507
  Receipt Date: 20140507
  Transmission Date: 20141212
  Serious: Yes (Other)
  Sender: FDA-Public Use
  Company Number: 2014AP002816

PATIENT
  Age: 9 Year
  Sex: Female

DRUGS (3)
  1. TOPIRAMATE (TOPIRAMATE) UNKNOWN [Suspect]
     Indication: HEADACHE
  2. CARBAMAZEPINE (CARBAMAZEPINE) [Concomitant]
  3. CLOBAZAM (CLOBAZAM) [Concomitant]

REACTIONS (2)
  - General physical health deterioration [None]
  - Aphasia [None]
